FAERS Safety Report 5310238-7 (Version None)
Quarter: 2007Q2

REPORT INFORMATION
  Report Type: 
  Country: None (occurrence: None)
  Receive Date: 20070427
  Receipt Date: 20070418
  Transmission Date: 20071010
  Serious: Yes (Hospitalization, Other)
  Sender: FDA-Public Use
  Company Number: GR-ABBOTT-07P-066-0365403-00

PATIENT
  Age: 75 Year
  Sex: Female

DRUGS (7)
  1. HUMIRA [Suspect]
     Indication: RHEUMATOID ARTHRITIS
     Route: 058
     Dates: start: 20070208, end: 20070308
  2. LEFLUNOMIDE [Concomitant]
     Indication: RHEUMATOID ARTHRITIS
     Route: 048
     Dates: start: 20040101
  3. PREDNISOLONE [Concomitant]
     Indication: RHEUMATOID ARTHRITIS
     Route: 048
     Dates: start: 20030101
  4. GLUCOPHAGE [Concomitant]
     Indication: DIABETES MELLITUS
     Route: 048
  5. GLIMEPIRIDE [Concomitant]
     Indication: DIABETES MELLITUS
     Route: 048
  6. ALENDRONATE SODIUM [Concomitant]
     Indication: OSTEOPOROSIS
     Route: 048
  7. CALCIORAL D3 [Concomitant]
     Indication: OSTEOPOROSIS
     Route: 048

REACTIONS (6)
  - DYSURIA [None]
  - HYPERGLYCAEMIA [None]
  - HYPONATRAEMIA [None]
  - PYREXIA [None]
  - URINARY TRACT INFECTION [None]
  - VOMITING [None]
